FAERS Safety Report 5131078-8 (Version None)
Quarter: 2006Q4

REPORT INFORMATION
  Report Type: 
  Country: None (occurrence: None)
  Receive Date: 20060825
  Receipt Date: 20060612
  Transmission Date: 20070319
  Serious: Yes (Other)
  Sender: FDA-Public Use
  Company Number: 2006075048

PATIENT
  Sex: Male
  Weight: 70 kg

DRUGS (8)
  1. VFEND [Suspect]
     Indication: ANTIFUNGAL PROPHYLAXIS
     Dosage: 400MG (200MG, BID INTERVAL: EVERY DAY), ORAL
     Route: 048
     Dates: start: 20060608
  2. PROGRAF [Concomitant]
  3. IMURAN [Concomitant]
  4. PREDNISONE TAB [Concomitant]
  5. MUCINEX [Concomitant]
  6. PERCOCET [Concomitant]
  7. BACTRIM [Concomitant]
  8. VALCYTE [Concomitant]

REACTIONS (2)
  - COLOUR BLINDNESS [None]
  - PHOTOSENSITIVITY REACTION [None]
